FAERS Safety Report 7903291-5 (Version None)
Quarter: 2011Q4

REPORT INFORMATION
  Report Type: 
  Country: None (occurrence: None)
  Receive Date: 20111108
  Receipt Date: 20111108
  Transmission Date: 20120403
  Serious: Yes (Hospitalization)
  Sender: FDA-Public Use
  Company Number: None

PATIENT
  Sex: Male
  Weight: 109 kg

DRUGS (5)
  1. PEG-L-ASPARAGINASE (K-H) [Suspect]
     Dosage: 11450 IU
  2. METHOTREXATE [Suspect]
     Dosage: 2179 MG
  3. METHADONE HCL [Concomitant]
  4. VINCRISTINE SULFATE [Suspect]
     Dosage: 10 MG
  5. DILAUDID [Concomitant]

REACTIONS (4)
  - DEPRESSION [None]
  - OVERDOSE [None]
  - BLOOD TRIGLYCERIDES INCREASED [None]
  - BACK PAIN [None]
